FAERS Safety Report 19636048 (Version 1)
Quarter: 2021Q3

REPORT INFORMATION
  Report Type: Report from Study
  Country: US (occurrence: US)
  Receive Date: 20210730
  Receipt Date: 20210730
  Transmission Date: 20211014
  Serious: Yes (Disabling)
  Sender: FDA-Public Use
  Company Number: US-BEH-2021134448

PATIENT
  Age: 50 Year
  Sex: Male

DRUGS (1)
  1. HIZENTRA [Suspect]
     Active Substance: HUMAN IMMUNOGLOBULIN G
     Indication: PRIMARY IMMUNODEFICIENCY SYNDROME
     Dosage: UNK, BIW
     Route: 058
     Dates: start: 20200727

REACTIONS (13)
  - Headache [Unknown]
  - Malaise [Unknown]
  - Upper respiratory tract infection [Unknown]
  - No adverse event [Unknown]
  - Wound [Unknown]
  - Blood immunoglobulin G increased [Unknown]
  - Disturbance in attention [Unknown]
  - Unevaluable event [Unknown]
  - Fatigue [Unknown]
  - Alopecia [Unknown]
  - Product dose omission issue [Unknown]
  - Anosmia [Unknown]
  - Localised infection [Unknown]

NARRATIVE: CASE EVENT DATE: 20200727
